FAERS Safety Report 4619478-3 (Version None)
Quarter: 2005Q1

REPORT INFORMATION
  Report Type: 
  Country: None (occurrence: None)
  Receive Date: 20050325
  Receipt Date: 20050317
  Transmission Date: 20050727
  Serious: Yes (Other)
  Sender: FDA-Public Use
  Company Number: DE-JNJFOC-20050304341

PATIENT
  Age: 33 Year
  Sex: Female

DRUGS (3)
  1. RISPERDAL [Suspect]
     Indication: BORDERLINE PERSONALITY DISORDER
     Route: 049
  2. ZOLOFT [Suspect]
     Indication: DEPRESSION
     Route: 049
  3. ATOSIL [Concomitant]
     Route: 049

REACTIONS (1)
  - LEUKOPENIA [None]
